FAERS Safety Report 7986882-5 (Version None)
Quarter: 2011Q4

REPORT INFORMATION
  Report Type: 
  Country: None (occurrence: None)
  Receive Date: 20111216
  Receipt Date: 20111118
  Transmission Date: 20120403
  Serious: Yes (Hospitalization)
  Sender: FDA-Public Use
  Company Number: CH-BAYER-2011-111369

PATIENT
  Sex: Female

DRUGS (2)
  1. CIPROFLAXACIN [Suspect]
     Indication: DIVERTICULITIS
     Dosage: 500 MG, BID
     Route: 048
     Dates: start: 20110922, end: 20111001
  2. FLAGYL [Suspect]
     Dosage: 500 MG, TID
     Route: 048
     Dates: start: 20110922, end: 20111001

REACTIONS (1)
  - VERTIGO [None]
